FAERS Safety Report 15133650 (Version 5)
Quarter: 2025Q2

REPORT INFORMATION
  Report Type: Spontaneous
  Country: PT (occurrence: PT)
  Receive Date: 20180712
  Receipt Date: 20250428
  Transmission Date: 20250716
  Serious: Yes (Hospitalization, Other)
  Sender: AUROBINDO
  Company Number: PT-AUROBINDO-AUR-APL-2018-035055

PATIENT
  Age: 57 Year
  Sex: Male

DRUGS (24)
  1. LISINOPRIL [Suspect]
     Active Substance: LISINOPRIL
     Indication: Product used for unknown indication
     Route: 065
  2. BISOPROLOL [Suspect]
     Active Substance: BISOPROLOL
     Indication: Product used for unknown indication
     Route: 065
  3. FENOFIBRATE [Suspect]
     Active Substance: FENOFIBRATE
     Indication: Product used for unknown indication
     Dosage: 145 MILLIGRAM, ONCE A DAY
     Route: 065
  4. CLOPIDOGREL [Suspect]
     Active Substance: CLOPIDOGREL BISULFATE
     Indication: Product used for unknown indication
     Dosage: 75 MILLIGRAM, ONCE A DAY
     Route: 065
  5. ATORVASTATIN [Suspect]
     Active Substance: ATORVASTATIN
     Indication: Product used for unknown indication
     Route: 065
  6. ATORVASTATIN [Suspect]
     Active Substance: ATORVASTATIN
     Dosage: 100 MILLIGRAM, ONCE A DAY
     Route: 065
  7. ATORVASTATIN [Suspect]
     Active Substance: ATORVASTATIN
     Dosage: 75 MILLIGRAM, ONCE A DAY
     Route: 065
  8. ATORVASTATIN [Suspect]
     Active Substance: ATORVASTATIN
     Route: 065
  9. ASPIRIN [Suspect]
     Active Substance: ASPIRIN
     Indication: Product used for unknown indication
     Dosage: 100 MILLIGRAM, ONCE A DAY
     Route: 065
  10. ISOPHANE INSULIN [Concomitant]
     Active Substance: INSULIN NOS
     Indication: Product used for unknown indication
     Route: 065
  11. LINAGLIPTIN [Concomitant]
     Active Substance: LINAGLIPTIN
     Indication: Product used for unknown indication
     Route: 065
  12. TENOFOVIR [Concomitant]
     Active Substance: TENOFOVIR
     Indication: Hepatitis B
     Route: 065
  13. DARUNAVIR [Concomitant]
     Active Substance: DARUNAVIR
     Indication: Antiretroviral therapy
     Dosage: 1200 MILLIGRAM, ONCE A DAY
     Route: 065
  14. RITONAVIR [Concomitant]
     Active Substance: RITONAVIR
     Indication: Antiretroviral therapy
     Dosage: 200 MILLIGRAM, ONCE A DAY
     Route: 065
  15. RALTEGRAVIR [Concomitant]
     Active Substance: RALTEGRAVIR
     Indication: Antiretroviral therapy
     Dosage: 800 MILLIGRAM, ONCE A DAY
     Route: 065
  16. PANTOPRAZOLE [Concomitant]
     Active Substance: PANTOPRAZOLE
     Indication: Product used for unknown indication
     Route: 065
  17. Emtricitabin + tenofovir disoproxil fumarato [Concomitant]
     Indication: Antiretroviral therapy
     Route: 065
  18. Emtricitabin + tenofovir disoproxil fumarato [Concomitant]
     Indication: Hepatitis B
     Dosage: 600 MILLIGRAM, TWO TIMES A DAY
     Route: 065
  19. Emtricitabin + tenofovir disoproxil fumarato [Concomitant]
     Indication: Type V hyperlipidaemia
     Dosage: 400 MILLIGRAM, TWO TIMES A DAY
     Route: 065
  20. Emtricitabin + tenofovir disoproxil fumarato [Concomitant]
     Route: 065
  21. Emtricitabin + tenofovir disoproxil fumarato [Concomitant]
     Route: 065
  22. Emtricitabin + tenofovir disoproxil fumarato [Concomitant]
     Route: 065
  23. Emtricitabin + tenofovir disoproxil fumarato [Concomitant]
     Dosage: 100 MILLIGRAM, TWO TIMES A DAY
     Route: 065
  24. ATORVASTATIN [Concomitant]
     Active Substance: ATORVASTATIN
     Indication: Type V hyperlipidaemia
     Route: 065

REACTIONS (2)
  - Acute myocardial infarction [Recovered/Resolved]
  - Drug ineffective [Recovered/Resolved]
